FAERS Safety Report 8616869-0 (Version None)
Quarter: 2012Q3

REPORT INFORMATION
  Report Type: 
  Country: None (occurrence: None)
  Receive Date: 20120823
  Receipt Date: 20120809
  Transmission Date: 20120928
  Serious: No
  Sender: FDA-Public Use
  Company Number: US-009507513-1208USA004722

PATIENT

DRUGS (1)
  1. DULERA [Suspect]
     Dosage: 100/5 MCG, BID
     Dates: start: 20120801

REACTIONS (3)
  - DRUG DOSE OMISSION [None]
  - DYSPNOEA [None]
  - PRODUCT QUALITY ISSUE [None]
